FAERS Safety Report 20767343 (Version 1)
Quarter: 2022Q2

REPORT INFORMATION
  Report Type: Spontaneous
  Country: IR (occurrence: IR)
  Receive Date: 20220429
  Receipt Date: 20220429
  Transmission Date: 20220721
  Serious: Yes (Hospitalization, Disabling, Other)
  Sender: FDA-Public Use
  Company Number: IR-LUPIN PHARMACEUTICALS INC.-2022-06187

PATIENT
  Age: 22 Year
  Sex: Female

DRUGS (5)
  1. AZITHROMYCIN [Suspect]
     Active Substance: AZITHROMYCIN
     Indication: Viral upper respiratory tract infection
     Dosage: UNK
     Route: 065
  2. NAPROXEN [Suspect]
     Active Substance: NAPROXEN
     Indication: Viral upper respiratory tract infection
     Dosage: UNK
     Route: 065
  3. VITAMINS [Concomitant]
     Active Substance: VITAMINS
     Indication: Vitamin supplementation
     Dosage: UNK
     Route: 065
  4. VITAMIN D [Concomitant]
     Active Substance: VITAMIN D NOS
     Indication: Vitamin supplementation
     Dosage: UNK
     Route: 065
  5. IRON [Concomitant]
     Active Substance: IRON
     Indication: Mineral supplementation
     Dosage: UNK
     Route: 065

REACTIONS (4)
  - Stevens-Johnson syndrome [Unknown]
  - Neovaginal stenosis [Unknown]
  - Corneal perforation [Not Recovered/Not Resolved]
  - Blindness [Not Recovered/Not Resolved]
